FAERS Safety Report 9310770 (Version 1)
Quarter: 2013Q2

REPORT INFORMATION
  Report Type: Spontaneous
  Country: CA (occurrence: CA)
  Receive Date: 20130528
  Receipt Date: 20130528
  Transmission Date: 20140414
  Serious: Yes (Death)
  Sender: FDA-Public Use
  Company Number: CA-AMGEN-CANSP2013037152

PATIENT
  Age: 43 Year
  Sex: Female

DRUGS (1)
  1. NEUPOGEN [Suspect]
     Indication: NEOPLASM MALIGNANT
     Dosage: 1.6ML/480MCG, UNK
     Dates: start: 20130120

REACTIONS (1)
  - Neoplasm malignant [Fatal]
